FAERS Safety Report 20137319 (Version 2)
Quarter: 2022Q1

REPORT INFORMATION
  Report Type: Spontaneous
  Country: US (occurrence: US)
  Receive Date: 20211201
  Receipt Date: 20220126
  Transmission Date: 20220423
  Serious: Yes (Other)
  Sender: FDA-Public Use
  Company Number: US-PFIZER INC-202101619401

PATIENT
  Age: 71 Year
  Sex: Female
  Weight: 73.9 kg

DRUGS (2)
  1. ZOSYN [Suspect]
     Active Substance: PIPERACILLIN SODIUM\TAZOBACTAM SODIUM
     Indication: Cholecystitis
     Dosage: 4.5 G THROUGH INTRAVENOUS ONCE OVER 4 HOURS INSTEAD OF 30 MINUTES THAT IT IS NORMALLY INFUSED
     Route: 042
     Dates: end: 20211109
  2. ZOSYN [Suspect]
     Active Substance: PIPERACILLIN SODIUM\TAZOBACTAM SODIUM
     Dosage: 4.5 G (4.5 GM IV 98 HOURS PROLONGED 4 HOURS INFUSION)
     Route: 042
     Dates: start: 20211109, end: 20211109

REACTIONS (5)
  - Anaphylactic reaction [Recovered/Resolved]
  - Respiratory distress [Recovered/Resolved]
  - Anxiety [Unknown]
  - Feeling abnormal [Recovered/Resolved]
  - Off label use [Unknown]

NARRATIVE: CASE EVENT DATE: 20211109
